FAERS Safety Report 8018722-2 (Version None)
Quarter: 2012Q1

REPORT INFORMATION
  Report Type: 
  Country: None (occurrence: None)
  Receive Date: 20120103
  Receipt Date: 20111220
  Transmission Date: 20120608
  Serious: Yes (Hospitalization, Other)
  Sender: FDA-Public Use
  Company Number: ES-UCBSA-048205

PATIENT
  Age: 40 Year
  Sex: Female

DRUGS (6)
  1. MEROPENEM [Concomitant]
     Indication: PANCREATITIS
     Dosage: DAILY DOSE 3 GM
     Route: 042
     Dates: start: 20111024
  2. KEPPRA [Suspect]
     Indication: CONVULSION
     Dosage: 500 MG TABLETS
     Route: 042
     Dates: start: 20111024, end: 20111104
  3. METRONIDAZOL ALMIRALL [Concomitant]
     Indication: PANCREATITIS
     Dosage: DAILY DOSE 1500 MG
     Route: 042
     Dates: start: 20111005
  4. DESKETOPROFEN [Concomitant]
     Indication: PAIN
     Dosage: DAILY DOSE 150 MG
     Route: 042
     Dates: start: 20111101, end: 20111104
  5. AMIKACIN [Concomitant]
     Indication: PANCREATITIS
     Dosage: DAILY DOSE 1 GM
     Route: 042
     Dates: start: 20111006
  6. ESCALTA [Concomitant]
     Indication: PANCREATITIS
     Dosage: DAILY DOSE 100 MG
     Route: 042
     Dates: start: 20111006

REACTIONS (2)
  - INCORRECT ROUTE OF DRUG ADMINISTRATION [None]
  - PANCYTOPENIA [None]
